FAERS Safety Report 9227345 (Version 1)
Quarter: 2013Q2

REPORT INFORMATION
  Report Type: Spontaneous
  Country: US (occurrence: None)
  Receive Date: 20130411
  Receipt Date: 20130411
  Transmission Date: 20140414
  Serious: Yes (Hospitalization)
  Sender: FDA-Public Use
  Company Number: None

PATIENT
  Age: 82 Year
  Sex: Female
  Weight: 65.2 kg

DRUGS (10)
  1. DIGOXIN [Suspect]
     Indication: BRADYCARDIA
     Dosage: RECENT WITH RECENT DECREASE 250 MCG DAILY PO
     Route: 048
  2. CENTRUM SILVER [Concomitant]
  3. VIT D [Concomitant]
  4. LOSARTAN [Concomitant]
  5. MACULAR VIT BENEFIT [Concomitant]
  6. PREVACID [Concomitant]
  7. MAXZIDE [Concomitant]
  8. METOPROLOL [Concomitant]
  9. ZOFRAN [Concomitant]
  10. TRAMADOL [Concomitant]

REACTIONS (5)
  - Mental status changes [None]
  - Metabolic encephalopathy [None]
  - Toxicity to various agents [None]
  - Urinary tract infection [None]
  - Renal failure acute [None]
